FAERS Safety Report 5081969-1 (Version None)
Quarter: 2006Q3

REPORT INFORMATION
  Report Type: 
  Country: None (occurrence: None)
  Receive Date: 20060811
  Receipt Date: 20060807
  Transmission Date: 20061208
  Serious: Yes (Hospitalization, Other)
  Sender: FDA-Public Use
  Company Number: DEWYE346325JUL06

PATIENT
  Age: 43 Year
  Sex: Female

DRUGS (4)
  1. VENLAFAXINE HCL [Suspect]
     Dosage: 10 CAPSULES (OVERDOSE AMOUNT 750MG) ORAL
     Route: 048
     Dates: start: 20060724, end: 20060724
  2. EDRONAX (REBOXETINE, , 0) [Suspect]
     Dosage: 19 TABLETS (OVERDOSE AMOUNT 76MG) ORAL
     Route: 048
     Dates: start: 20060724, end: 20060724
  3. IBUPROFEN [Suspect]
     Dosage: 20 TABLETS (OVERDOSE AMOUNT 12000MG) ORAL
     Route: 048
     Dates: start: 20060724, end: 20060724
  4. LORAZEPAM [Suspect]
     Dosage: 10 TABLETS (OVERDOSE AMOUNT 10MG) ORAL
     Route: 048
     Dates: start: 20060724, end: 20060724

REACTIONS (6)
  - DEPRESSION [None]
  - MULTIPLE DRUG OVERDOSE INTENTIONAL [None]
  - NAUSEA [None]
  - SOMNOLENCE [None]
  - STOMACH DISCOMFORT [None]
  - SUICIDE ATTEMPT [None]
